FAERS Safety Report 11549260 (Version 5)
Quarter: 2025Q2

REPORT INFORMATION
  Report Type: Spontaneous
  Country: US (occurrence: None)
  Receive Date: 20150924
  Receipt Date: 20250630
  Transmission Date: 20250716
  Serious: Yes (Other)
  Sender: INCYTE
  Company Number: US-INCYTE CORPORATION-2015IN002988

PATIENT
  Age: 54 Year
  Weight: 98.594 kg

DRUGS (5)
  1. JAKAFI [Suspect]
     Active Substance: RUXOLITINIB
     Indication: Polycythaemia vera
     Dosage: 10 MILLIGRAM, BID
  2. JAKAFI [Suspect]
     Active Substance: RUXOLITINIB
     Dosage: 20 MILLIGRAM, BID
  3. JAKAFI [Suspect]
     Active Substance: RUXOLITINIB
     Dosage: 20 MILLIGRAM, BID
  4. JAKAFI [Suspect]
     Active Substance: RUXOLITINIB
     Dosage: 20 MILLIGRAM, BID
  5. JAKAFI [Suspect]
     Active Substance: RUXOLITINIB
     Dosage: 20 MILLIGRAM, BID

REACTIONS (18)
  - Rectal haemorrhage [Unknown]
  - Loss of consciousness [Unknown]
  - Pyrexia [Unknown]
  - Pain [Unknown]
  - Myalgia [Unknown]
  - Cardiovascular disorder [Unknown]
  - Haematocrit increased [Unknown]
  - Memory impairment [Unknown]
  - Feeling abnormal [Unknown]
  - COVID-19 [Unknown]
  - Product availability issue [Unknown]
  - Constipation [Unknown]
  - Haematocrit decreased [Unknown]
  - Pruritus [Unknown]
  - Dizziness [Unknown]
  - Nausea [Unknown]
  - Balance disorder [Unknown]
  - Dyspnoea [Unknown]
